FAERS Safety Report 4809054-1 (Version None)
Quarter: 2005Q4

REPORT INFORMATION
  Report Type: 
  Country: None (occurrence: None)
  Receive Date: 20051021
  Receipt Date: 20040908
  Transmission Date: 20060501
  Serious: Yes (Other)
  Sender: FDA-Public Use
  Company Number: GBS040915587

PATIENT
  Age: 54 Year
  Sex: Male

DRUGS (5)
  1. OLANZAPINE [Suspect]
     Indication: SCHIZOPHRENIA
     Dosage: 20 MG DAY
     Dates: start: 20040401, end: 20040708
  2. LITHIUM CARBONATE [Concomitant]
  3. CLONAZEPAM [Concomitant]
  4. FERROUS SULFATE TAB [Concomitant]
  5. ZUCLOPENTHIXOL ACETATE [Concomitant]

REACTIONS (3)
  - PANCYTOPENIA [None]
  - STAPHYLOCOCCAL INFECTION [None]
  - WOUND INFECTION [None]
